FAERS Safety Report 15739697 (Version 2)
Quarter: 2019Q1

REPORT INFORMATION
  Report Type: Spontaneous
  Country: US (occurrence: US)
  Receive Date: 20181219
  Receipt Date: 20190213
  Transmission Date: 20190417
  Serious: No
  Sender: FDA-Public Use
  Company Number: US-ASTRAZENECA-2018SF59917

PATIENT
  Age: 27382 Day
  Sex: Male
  Weight: 91.2 kg

DRUGS (2)
  1. SYMBICORT [Suspect]
     Active Substance: BUDESONIDE\FORMOTEROL FUMARATE DIHYDRATE
     Indication: CHRONIC OBSTRUCTIVE PULMONARY DISEASE
     Dosage: 160/4.5 MCG, TWO INHALATIONS EVERY 12 HOURS
     Route: 055
  2. OXYGEN. [Concomitant]
     Active Substance: OXYGEN
     Indication: DYSPNOEA
     Dosage: 4.5 AS REQUIRED
     Route: 055

REACTIONS (3)
  - Intentional device misuse [Unknown]
  - Dyspnoea [Unknown]
  - Device defective [Unknown]

NARRATIVE: CASE EVENT DATE: 20181201
